FAERS Safety Report 4653157-1 (Version None)
Quarter: 2005Q2

REPORT INFORMATION
  Report Type: 
  Country: None (occurrence: None)
  Receive Date: 20050502
  Receipt Date: 20050502
  Transmission Date: 20051028
  Serious: Yes (Hospitalization)
  Sender: FDA-Public Use
  Company Number: None

PATIENT
  Sex: Male
  Weight: 23.1334 kg

DRUGS (1)
  1. GEODON [Suspect]
     Dosage: ONCE   DAY   ORAL
     Route: 048

REACTIONS (6)
  - CRYING [None]
  - DROOLING [None]
  - DYSKINESIA [None]
  - EYE MOVEMENT DISORDER [None]
  - SPEECH DISORDER [None]
  - TARDIVE DYSKINESIA [None]
